FAERS Safety Report 14814835 (Version 1)
Quarter: 2018Q2

REPORT INFORMATION
  Report Type: Report from Study
  Country: US (occurrence: US)
  Receive Date: 20180426
  Receipt Date: 20180426
  Transmission Date: 20180711
  Serious: Yes (Other)
  Sender: FDA-Public Use
  Company Number: US-MYLANLABS-2018M1026236

PATIENT
  Age: 83 Year
  Sex: Female

DRUGS (3)
  1. ROCILETINIB [Suspect]
     Active Substance: ROCILETINIB
     Indication: LUNG ADENOCARCINOMA
     Dosage: 2 CYCLES
     Route: 065
  2. GEMCITABINE [Suspect]
     Active Substance: GEMCITABINE\GEMCITABINE HYDROCHLORIDE
     Indication: LUNG ADENOCARCINOMA
     Dosage: 4 CYCLES WITH ERLOTINIB
     Route: 065
  3. ERLOTINIB [Suspect]
     Active Substance: ERLOTINIB
     Indication: LUNG ADENOCARCINOMA
     Dosage: 3 CYCLES, THEN 4 CYCLES WITH GEMCITABINE
     Route: 065

REACTIONS (1)
  - Thrombocytopenia [Unknown]
